FAERS Safety Report 4574265-X (Version None)
Quarter: 2005Q1

REPORT INFORMATION
  Report Type: 
  Country: None (occurrence: None)
  Receive Date: 20050208
  Receipt Date: 20041124
  Transmission Date: 20050727
  Serious: No
  Sender: FDA-Public Use
  Company Number: US-GLAXOSMITHKLINE-A0535152A

PATIENT
  Age: 67 Year
  Sex: Female

DRUGS (3)
  1. PAXIL [Suspect]
     Dosage: 20MG PER DAY
     Route: 048
  2. ASPIRIN [Concomitant]
  3. ZETIA [Concomitant]

REACTIONS (2)
  - ANXIETY [None]
  - FEELING ABNORMAL [None]
